FAERS Safety Report 6312124-2 (Version None)
Quarter: 2009Q3

REPORT INFORMATION
  Report Type: 
  Country: None (occurrence: None)
  Receive Date: 20090817
  Receipt Date: 20090804
  Transmission Date: 20100115
  Serious: Yes (Hospitalization, Other)
  Sender: FDA-Public Use
  Company Number: US-ELI_LILLY_AND_COMPANY-US200908000665

PATIENT
  Sex: Male

DRUGS (14)
  1. CYMBALTA [Suspect]
     Indication: BIPOLAR DISORDER
     Dosage: 20 MG, DAILY (1/D)
     Dates: start: 20081201
  2. CYMBALTA [Suspect]
     Dosage: 20 MG, 2/D
  3. CYMBALTA [Suspect]
     Dosage: 20 MG, 3/D
  4. CYMBALTA [Suspect]
     Dosage: 30 MG, 2/D
  5. DEPAKOTE [Concomitant]
     Indication: MOOD SWINGS
  6. SEROQUEL [Concomitant]
     Indication: MOOD SWINGS
  7. KLONOPIN [Concomitant]
     Indication: PANIC ATTACK
  8. AMBIEN [Concomitant]
     Indication: INSOMNIA
  9. CENTRUM [Concomitant]
  10. ABILIFY [Concomitant]
     Dates: end: 20090501
  11. LITHIUM [Concomitant]
     Dates: end: 20090501
  12. FISH OIL [Concomitant]
     Route: 048
     Dates: end: 20090501
  13. FOLIC ACID [Concomitant]
     Dates: end: 20090501
  14. VITAMIN D [Concomitant]
     Dates: end: 20090501

REACTIONS (11)
  - CONTUSION [None]
  - CONVULSION [None]
  - DEPRESSION [None]
  - DRUG WITHDRAWAL SYNDROME [None]
  - FATIGUE [None]
  - FEELING DRUNK [None]
  - LOSS OF CONSCIOUSNESS [None]
  - OFF LABEL USE [None]
  - PAIN [None]
  - PARAESTHESIA [None]
  - TONGUE INJURY [None]
